APPROVED DRUG PRODUCT: IONAMIN
Active Ingredient: PHENTERMINE RESIN COMPLEX
Strength: EQ 30MG BASE **Federal Register determination that product was not discontinued or withdrawn for safety or effectiveness reasons**
Dosage Form/Route: CAPSULE, EXTENDED RELEASE;ORAL
Application: N011613 | Product #002
Applicant: UCB INC
Approved: Approved Prior to Jan 1, 1982 | RLD: No | RS: No | Type: DISCN